FAERS Safety Report 8066120-8 (Version None)
Quarter: 2012Q1

REPORT INFORMATION
  Report Type: 
  Country: None (occurrence: None)
  Receive Date: 20120124
  Receipt Date: 20120118
  Transmission Date: 20120608
  Serious: Yes (Other)
  Sender: FDA-Public Use
  Company Number: JP-ROCHE-1024164

PATIENT
  Sex: Male
  Weight: 62 kg

DRUGS (15)
  1. EMEND [Concomitant]
     Dosage: DOSAGE IS UNCERTAIN.
     Route: 048
     Dates: start: 20110913, end: 20111126
  2. VOLTAREN [Concomitant]
     Dosage: SINGLE USE
     Route: 054
     Dates: start: 20110913
  3. HERCEPTIN [Suspect]
     Indication: METASTATIC GASTRIC CANCER
     Route: 041
     Dates: start: 20111004, end: 20111124
  4. XELODA [Suspect]
     Indication: METASTATIC GASTRIC CANCER
     Route: 048
     Dates: start: 20110912, end: 20111208
  5. NOVAMIN [Concomitant]
     Route: 048
     Dates: start: 20111006
  6. CELECOXIB [Concomitant]
     Route: 048
     Dates: start: 20110831
  7. ONEALFA [Concomitant]
     Route: 048
     Dates: start: 20111024
  8. DECADRON [Concomitant]
     Route: 041
     Dates: start: 20111124, end: 20111124
  9. CISPLATIN [Concomitant]
     Indication: METASTATIC GASTRIC CANCER
     Route: 041
     Dates: start: 20111124, end: 20111124
  10. TRAMADOL HYDROCHLORIDE [Concomitant]
     Route: 048
     Dates: start: 20110908
  11. HUMULIN R [Concomitant]
     Dosage: DOSAGE IS UNCERTAIN.
     Route: 041
     Dates: start: 20111124, end: 20111124
  12. HERCEPTIN [Suspect]
     Route: 041
     Dates: start: 20110913, end: 20110913
  13. PURSENNID [Concomitant]
     Dosage: SINGLE USE
     Route: 048
     Dates: start: 20110908
  14. ASPARA-CA [Concomitant]
     Route: 048
     Dates: start: 20111024
  15. ALOXI [Concomitant]
     Route: 041
     Dates: start: 20111124, end: 20111124

REACTIONS (1)
  - CEREBRAL INFARCTION [None]
